FAERS Safety Report 12459589 (Version 1)
Quarter: 2016Q2

REPORT INFORMATION
  Report Type: Spontaneous
  Country: US (occurrence: None)
  Receive Date: 20160610
  Receipt Date: 20160610
  Transmission Date: 20160815
  Serious: Yes (Hospitalization)
  Sender: FDA-Public Use
  Company Number: None

PATIENT
  Age: 87 Year
  Sex: Male
  Weight: 73.5 kg

DRUGS (1)
  1. DABIGATRAN BOEHRINGER/INGELHEIM [Suspect]
     Active Substance: DABIGATRAN
     Indication: ATRIAL FIBRILLATION
     Route: 048

REACTIONS (6)
  - Gastritis erosive [None]
  - Hypotension [None]
  - Haematemesis [None]
  - Melaena [None]
  - Anaemia [None]
  - Gastric antral vascular ectasia [None]

NARRATIVE: CASE EVENT DATE: 20160513
